FAERS Safety Report 12596797 (Version 3)
Quarter: 2025Q4

REPORT INFORMATION
  Report Type: Spontaneous
  Country: BR (occurrence: BR)
  Receive Date: 20160727
  Receipt Date: 20251008
  Transmission Date: 20260118
  Serious: Yes (Death, Life-Threatening, Other)
  Sender: RANBAXY
  Company Number: BR-MLMSERVICE-20160720-0354486-1

PATIENT
  Age: 19 Year
  Sex: Female

DRUGS (4)
  1. PREDNISONE [Suspect]
     Active Substance: PREDNISONE
     Indication: Lupus nephritis
     Dosage: 30 MG, DAILY
     Route: 065
  2. AZATHIOPRINE [Suspect]
     Active Substance: AZATHIOPRINE
     Indication: Lupus nephritis
     Dosage: 100 MG, DAILY
     Route: 065
  3. ALENDRONATE [Concomitant]
     Active Substance: ALENDRONATE SODIUM
     Indication: Product used for unknown indication
     Dosage: UNK
     Route: 065
  4. CALCITONIN [Concomitant]
     Active Substance: CALCITONIN
     Indication: Product used for unknown indication
     Dosage: UNK
     Route: 065

REACTIONS (5)
  - Sepsis [Fatal]
  - Disseminated tuberculosis [Fatal]
  - Pneumonia [Fatal]
  - Headache [Unknown]
  - Confusional state [Unknown]
